FAERS Safety Report 9638287 (Version 1)
Quarter: 2013Q4

REPORT INFORMATION
  Report Type: Report from Study
  Country: US (occurrence: US)
  Receive Date: 20131022
  Receipt Date: 20131022
  Transmission Date: 20140711
  Serious: Yes (Hospitalization)
  Sender: FDA-Public Use
  Company Number: US-ACTELION-A-NJ2013-89941

PATIENT
  Age: 43 Year
  Sex: Female

DRUGS (3)
  1. VELETRI [Suspect]
     Indication: PULMONARY ARTERIAL HYPERTENSION
     Dosage: 27 NG/KG, PER MIN
     Route: 041
     Dates: start: 20130519
  2. ADCIRCA [Concomitant]
  3. COUMADIN [Concomitant]

REACTIONS (2)
  - Infection [Unknown]
  - Dyspnoea [Unknown]
